FAERS Safety Report 5818014-3 (Version None)
Quarter: 2008Q3

REPORT INFORMATION
  Report Type: 
  Country: None (occurrence: None)
  Receive Date: 20080722
  Receipt Date: 20080717
  Transmission Date: 20090109
  Serious: Yes (Disabling)
  Sender: FDA-Public Use
  Company Number: GB-BOEHRINGER INGELHEIM GMBH, GERMANY-2008-UK-01188UK

PATIENT
  Age: 64 Year
  Weight: 85.5 kg

DRUGS (15)
  1. SPIRIVA [Suspect]
     Indication: ASTHMA
     Route: 055
     Dates: start: 20080313, end: 20080327
  2. SPIRIVA [Suspect]
     Indication: CHRONIC OBSTRUCTIVE PULMONARY DISEASE
  3. INSULIN [Concomitant]
  4. SYMBICORT [Concomitant]
     Indication: ASTHMA
  5. CALCICHEW D3 [Concomitant]
     Dosage: 1 DF
  6. ACETAMINOPHEN W/ CODEINE [Concomitant]
  7. ENALAPRIL MALEATE [Concomitant]
  8. INSULATARD PORCINE [Concomitant]
  9. OMEPRAZOLE [Concomitant]
     Dosage: 1 DF
  10. NOVORAPID [Concomitant]
  11. PULMICORT-100 [Concomitant]
  12. ALBUTEROL [Concomitant]
     Dosage: 2 DF
  13. TEMAZEPAM [Concomitant]
  14. ZAFIRLUKAST [Concomitant]
  15. ZANTAC [Concomitant]
     Dosage: 10 DF

REACTIONS (4)
  - ABDOMINAL PAIN [None]
  - DIARRHOEA [None]
  - NAUSEA [None]
  - TONGUE HAEMORRHAGE [None]
